FAERS Safety Report 7600919-4 (Version None)
Quarter: 2011Q3

REPORT INFORMATION
  Report Type: 
  Country: None (occurrence: None)
  Receive Date: 20110701
  Receipt Date: 20100608
  Transmission Date: 20111222
  Serious: Yes (Other)
  Sender: FDA-Public Use
  Company Number: GXBR2010US01127

PATIENT
  Age: 17 Year
  Sex: Male
  Weight: 50.5 kg

DRUGS (4)
  1. OMNITROPE [Suspect]
     Indication: DWARFISM
     Dosage: 5.2 MG, QD, INJECTION NOS
     Route: 042
     Dates: start: 20100607, end: 20100608
  2. STRATTERA [Suspect]
     Indication: ATTENTION DEFICIT/HYPERACTIVITY DISORDER
  3. RITALIN [Concomitant]
  4. TESTOSTERONE [Concomitant]

REACTIONS (3)
  - VOMITING [None]
  - INTRACRANIAL PRESSURE INCREASED [None]
  - NAUSEA [None]
